FAERS Safety Report 4498803-0 (Version None)
Quarter: 2004Q4

REPORT INFORMATION
  Report Type: 
  Country: None (occurrence: None)
  Receive Date: 20041108
  Receipt Date: 20041029
  Transmission Date: 20050328
  Serious: Yes (Hospitalization)
  Sender: FDA-Public Use
  Company Number: ZONI002046

PATIENT
  Age: 31 Year
  Sex: Female

DRUGS (9)
  1. EXCEGRAN (ZONISAMIDE) [Suspect]
     Indication: CONVULSION
     Dosage: 300 MG, ORAL
     Route: 048
     Dates: start: 20040331
  2. PHENYTOIN [Suspect]
     Indication: CONVULSION
     Dosage: 450 MG, ORAL
     Route: 048
     Dates: start: 20040302, end: 20040331
  3. DEPAKENE [Suspect]
     Indication: CONVULSION
     Dosage: 500 MG, ORAL
     Route: 048
     Dates: start: 20040302
  4. ISOZOL (THIAMYLAL SODIUM) [Suspect]
     Indication: CONVULSION
     Dosage: INTRAVENOUS INFUSION
     Route: 042
     Dates: start: 20040301, end: 20040316
  5. DIPRIVAN [Suspect]
     Indication: CONVULSION
     Dates: start: 20040303
  6. PHENOBARBITAL TAB [Suspect]
     Indication: CONVULSION
     Dosage: SEE IMAGE
     Dates: start: 20040302, end: 20040307
  7. PHENOBARBITAL TAB [Suspect]
     Indication: CONVULSION
     Dosage: SEE IMAGE
     Dates: start: 20040308, end: 20040331
  8. FORANE [Suspect]
     Indication: CONVULSION
     Dates: start: 20040304, end: 20040316
  9. CLOBAZAM (CLOBAZAM) [Suspect]
     Indication: CONVULSION
     Dosage: 30 MG, ORAL
     Route: 048
     Dates: start: 20040302

REACTIONS (8)
  - BLOOD IMMUNOGLOBULIN A INCREASED [None]
  - BLOOD IMMUNOGLOBULIN G INCREASED [None]
  - BLOOD IMMUNOGLOBULIN M INCREASED [None]
  - DRUG ERUPTION [None]
  - DRUG INEFFECTIVE [None]
  - IMMUNODEFICIENCY [None]
  - RASH GENERALISED [None]
  - SEPTIC SHOCK [None]
